FAERS Safety Report 7197679-0 (Version None)
Quarter: 2010Q4

REPORT INFORMATION
  Report Type: 
  Country: None (occurrence: None)
  Receive Date: 20101227
  Receipt Date: 20101214
  Transmission Date: 20110411
  Serious: Yes (Other)
  Sender: FDA-Public Use
  Company Number: NL-SANOFI-AVENTIS-2010SA075431

PATIENT

DRUGS (3)
  1. OXALIPLATIN [Suspect]
     Indication: RECTAL CANCER STAGE IV
  2. BEVACIZUMAB [Suspect]
     Indication: RECTAL CANCER STAGE IV
  3. CAPECITABINE [Suspect]
     Indication: RECTAL CANCER STAGE IV

REACTIONS (7)
  - CHOLECYSTITIS [None]
  - CONSTIPATION [None]
  - DIARRHOEA [None]
  - FATIGUE [None]
  - PAIN [None]
  - PALMAR-PLANTAR ERYTHRODYSAESTHESIA SYNDROME [None]
  - THROMBOSIS [None]
